FAERS Safety Report 7760646-X (Version None)
Quarter: 2011Q3

REPORT INFORMATION
  Report Type: 
  Country: None (occurrence: None)
  Receive Date: 20110919
  Receipt Date: 20110914
  Transmission Date: 20111222
  Serious: Yes (Life-Threatening, Other)
  Sender: FDA-Public Use
  Company Number: GB-PFIZER INC-2011199031

PATIENT
  Age: 49 Year
  Sex: Female
  Weight: 55 kg

DRUGS (3)
  1. AMITRIPTYLINE [Concomitant]
     Dosage: 25 MG, X3
     Route: 048
  2. VARENICLINE TARTRATE [Suspect]
     Dosage: 1 MG, UNK
  3. VARENICLINE TARTRATE [Suspect]
     Indication: SMOKING CESSATION THERAPY
     Dosage: 500 UG, UNK
     Dates: start: 20110127

REACTIONS (4)
  - ELECTRIC SHOCK [None]
  - PERSONALITY CHANGE [None]
  - ACCIDENT [None]
  - MOOD ALTERED [None]
